FAERS Safety Report 8353581-X (Version None)
Quarter: 2012Q2

REPORT INFORMATION
  Report Type: 
  Country: None (occurrence: None)
  Receive Date: 20120511
  Receipt Date: 20110630
  Transmission Date: 20120825
  Serious: No
  Sender: FDA-Public Use
  Company Number: US-GLAXOSMITHKLINE-A0934007A

PATIENT
  Age: 57 Year
  Sex: Female

DRUGS (8)
  1. LISINOPRIL [Concomitant]
  2. BUSPIRONE HCL [Concomitant]
  3. TYKERB [Suspect]
     Indication: BREAST CANCER
     Dosage: 750MG PER DAY
     Route: 048
     Dates: start: 20110604
  4. HERCEPTIN [Concomitant]
  5. LIPITOR [Concomitant]
  6. ZOLOFT [Concomitant]
  7. COQ-10 [Concomitant]
  8. NEXIUM [Concomitant]

REACTIONS (2)
  - CONSTIPATION [None]
  - MEMORY IMPAIRMENT [None]
